FAERS Safety Report 5798823-X (Version None)
Quarter: 2008Q2

REPORT INFORMATION
  Report Type: 
  Country: None (occurrence: None)
  Receive Date: 20080630
  Receipt Date: 20041018
  Transmission Date: 20081010
  Serious: Yes (Death)
  Sender: FDA-Public Use
  Company Number: 2007-01005FE

PATIENT
  Sex: 0

DRUGS (1)
  1. SOMATROPIN   (SOMATROPIN) [Suspect]

REACTIONS (9)
  - ACUTE RESPIRATORY DISTRESS SYNDROME [None]
  - ANURIA [None]
  - EPSTEIN-BARR VIRUS INFECTION [None]
  - HISTIOCYTOSIS HAEMATOPHAGIC [None]
  - INFECTION IN AN IMMUNOCOMPROMISED HOST [None]
  - LACTIC ACIDOSIS [None]
  - LUNG DISORDER [None]
  - LYMPHOHISTIOCYTOSIS [None]
  - OEDEMA [None]
